FAERS Safety Report 9683056 (Version 2)
Quarter: 2013Q4

REPORT INFORMATION
  Report Type: Spontaneous
  Country: US (occurrence: US)
  Receive Date: 20131112
  Receipt Date: 20131209
  Transmission Date: 20140711
  Serious: No
  Sender: FDA-Public Use
  Company Number: US-PFIZER INC-2013320445

PATIENT
  Age: 75 Year
  Sex: Male

DRUGS (5)
  1. SUTENT [Suspect]
     Indication: RENAL CANCER
     Dosage: 12.5 MG (STRENGTH)
     Dates: start: 20131023, end: 20131203
  2. BARIUM SULFATE [Concomitant]
     Dosage: UNK
  3. CENTRUM [Concomitant]
     Dosage: UNK
  4. FERROUS SULFATE [Concomitant]
     Dosage: UNK
  5. PROCHLORPERAZINE MALEATE [Concomitant]
     Dosage: UNK

REACTIONS (3)
  - Abdominal discomfort [Unknown]
  - Disease progression [Unknown]
  - Renal cancer [Unknown]
